FAERS Safety Report 14157938 (Version 1)
Quarter: 2017Q4

REPORT INFORMATION
  Report Type: Spontaneous
  Country: US (occurrence: US)
  Receive Date: 20171103
  Receipt Date: 20171103
  Transmission Date: 20180321
  Serious: No
  Sender: FDA-Public Use
  Company Number: US-TEVA-819841USA

PATIENT
  Age: 76 Year
  Sex: Female
  Weight: 58.11 kg

DRUGS (1)
  1. NUVIGIL [Suspect]
     Active Substance: ARMODAFINIL
     Indication: NARCOLEPSY
     Dosage: 250 MILLIGRAM DAILY;

REACTIONS (2)
  - Drug dose omission [Unknown]
  - Malaise [Unknown]

NARRATIVE: CASE EVENT DATE: 20171024
